FAERS Safety Report 4456975-8 (Version None)
Quarter: 2004Q3

REPORT INFORMATION
  Report Type: 
  Country: None (occurrence: None)
  Receive Date: 20040921
  Receipt Date: 20040913
  Transmission Date: 20050211
  Serious: Yes (Death, Other)
  Sender: FDA-Public Use
  Company Number: US-JNJFOC-20040903667

PATIENT
  Age: 18 Year
  Sex: Female

DRUGS (3)
  1. EXTRA STRENGTH TYLENOL [Suspect]
     Indication: SUICIDE ATTEMPT
     Dosage: APPROXIMATELY 35 GRAMS
  2. NAPROXEN [Suspect]
     Indication: SUICIDE ATTEMPT
     Dosage: 3.3 G, 1 IN 1 TOTAL, ORAL
     Route: 048
  3. UNSPECIFIED MEDICATION (ALL OTHER THERAPEUTIC PRODUCTS) [Suspect]
     Indication: SUICIDE ATTEMPT
     Dosage: ORAL
     Route: 048

REACTIONS (11)
  - BRAIN DEATH [None]
  - CARDIAC ARREST [None]
  - CEREBRAL HAEMORRHAGE [None]
  - COAGULOPATHY [None]
  - ENCEPHALOPATHY [None]
  - HEPATIC FAILURE [None]
  - MULTIPLE DRUG OVERDOSE [None]
  - NAUSEA [None]
  - OLIGURIA [None]
  - RENAL FAILURE [None]
  - VOMITING [None]
